FAERS Safety Report 11796585 (Version 2)
Quarter: 2016Q3

REPORT INFORMATION
  Report Type: Spontaneous
  Country: IT (occurrence: IT)
  Receive Date: 20151203
  Receipt Date: 20160714
  Transmission Date: 20161109
  Serious: Yes (Hospitalization)
  Sender: FDA-Public Use
  Company Number: IT-MYLANLABS-2015M1042793

PATIENT

DRUGS (2)
  1. FONDAPARINUX [Suspect]
     Active Substance: FONDAPARINUX
     Indication: OFF LABEL USE
  2. FONDAPARINUX [Suspect]
     Active Substance: FONDAPARINUX
     Indication: FOOT FRACTURE
     Dosage: 2.5 MG, QD
     Route: 058
     Dates: start: 20150907, end: 20151002

REACTIONS (2)
  - Anaemia [Recovered/Resolved]
  - Off label use [Recovered/Resolved]

NARRATIVE: CASE EVENT DATE: 20150907
